FAERS Safety Report 19891742 (Version 1)
Quarter: 2021Q3

REPORT INFORMATION
  Report Type: Report from Study
  Country: US (occurrence: US)
  Receive Date: 20210928
  Receipt Date: 20210928
  Transmission Date: 20211014
  Serious: Yes (Hospitalization, Other)
  Sender: FDA-Public Use
  Company Number: US-EXELIXIS-CABO-21044001

PATIENT
  Sex: Female

DRUGS (2)
  1. CABOMETYX [Suspect]
     Active Substance: CABOZANTINIB S-MALATE
     Dosage: 60 MG, QD
     Dates: end: 20210917
  2. CABOMETYX [Suspect]
     Active Substance: CABOZANTINIB S-MALATE
     Indication: MALIGNANT RESPIRATORY TRACT NEOPLASM
     Dosage: 60 MG, QD
     Dates: start: 20210816

REACTIONS (7)
  - Diverticulitis [Unknown]
  - Nausea [Recovered/Resolved]
  - Rash [Unknown]
  - Blood pressure increased [Unknown]
  - Pneumonia [Unknown]
  - Off label use [Unknown]
  - Intestinal perforation [Unknown]
